FAERS Safety Report 8488966-4 (Version None)
Quarter: 2012Q3

REPORT INFORMATION
  Report Type: 
  Country: None (occurrence: None)
  Receive Date: 20120705
  Receipt Date: 20120702
  Transmission Date: 20120928
  Serious: No
  Sender: FDA-Public Use
  Company Number: US-PFIZER INC-2012158590

PATIENT
  Sex: Male
  Weight: 76.19 kg

DRUGS (5)
  1. OMEPRAZOLE [Concomitant]
     Dosage: UNK, 1X/DAY
  2. ASPIRIN [Concomitant]
     Dosage: UNK
  3. LISINOPRIL [Concomitant]
     Dosage: 10 MG, 2X/DAY
  4. LYRICA [Suspect]
     Indication: AMNESIA
  5. LYRICA [Suspect]
     Indication: CONVULSION
     Dosage: 75 MG, 2X/DAY
     Route: 048
     Dates: start: 20120701

REACTIONS (2)
  - DIZZINESS [None]
  - BALANCE DISORDER [None]
